FAERS Safety Report 5257263-2 (Version None)
Quarter: 2007Q1

REPORT INFORMATION
  Report Type: 
  Country: None (occurrence: None)
  Receive Date: 20070301
  Receipt Date: 20070216
  Transmission Date: 20070707
  Serious: No
  Sender: FDA-Public Use
  Company Number: WSDF_00605

PATIENT
  Age: 56 Year
  Sex: Male

DRUGS (7)
  1. WINRHO SDF [Suspect]
     Indication: IDIOPATHIC THROMBOCYTOPENIC PURPURA
  2. WINRHO SDF [Suspect]
     Indication: IDIOPATHIC THROMBOCYTOPENIC PURPURA
  3. WINRHO SDF [Suspect]
     Indication: IDIOPATHIC THROMBOCYTOPENIC PURPURA
  4. WINRHO SDF [Suspect]
     Indication: IDIOPATHIC THROMBOCYTOPENIC PURPURA
  5. WINRHO SDF [Suspect]
     Indication: IDIOPATHIC THROMBOCYTOPENIC PURPURA
  6. WINRHO SDF [Suspect]
     Indication: IDIOPATHIC THROMBOCYTOPENIC PURPURA
     Dosage: 20000 IU DAILY
     Dates: start: 20040216, end: 20040216
  7. WINRHO SDF [Suspect]
     Indication: IDIOPATHIC THROMBOCYTOPENIC PURPURA
     Dosage: 20000 IU DAILY
     Dates: start: 20040609, end: 20040609

REACTIONS (10)
  - ASTHENIA [None]
  - BLOOD BILIRUBIN INCREASED [None]
  - CHROMATURIA [None]
  - DYSPNOEA [None]
  - FATIGUE [None]
  - HAEMOGLOBIN DECREASED [None]
  - HAEMOLYSIS [None]
  - INFLUENZA LIKE ILLNESS [None]
  - JAUNDICE [None]
  - NEUTROPENIA [None]
